FAERS Safety Report 12885022 (Version 2)
Quarter: 2016Q4

REPORT INFORMATION
  Report Type: Spontaneous
  Country: JP (occurrence: JP)
  Receive Date: 20161026
  Receipt Date: 20161207
  Transmission Date: 20170207
  Serious: Yes (Death, Other)
  Sender: FDA-Public Use
  Company Number: JP-PFIZER INC-2016491906

PATIENT
  Age: 94 Year
  Sex: Female

DRUGS (3)
  1. ANAEMETRO [Suspect]
     Active Substance: METRONIDAZOLE
     Indication: CLOSTRIDIUM DIFFICILE INFECTION
     Dosage: 500 MG, 3X/DAY
     Route: 041
     Dates: start: 20161014, end: 20161019
  2. CEFTRIAXONE NA 1G [Concomitant]
     Dosage: UNK
  3. TAKEPRON INTRAVENOUS 30MG [Concomitant]
     Dosage: UNK
     Route: 041

REACTIONS (3)
  - Miosis [Recovered/Resolved]
  - Altered state of consciousness [Recovered/Resolved]
  - Cardiac arrest [Fatal]
